FAERS Safety Report 4344342-7 (Version None)
Quarter: 2004Q2

REPORT INFORMATION
  Report Type: 
  Country: None (occurrence: None)
  Receive Date: 20040420
  Receipt Date: 20040407
  Transmission Date: 20050107
  Serious: Yes (Hospitalization)
  Sender: FDA-Public Use
  Company Number: 00P-056-0100672-00

PATIENT
  Sex: Male
  Weight: 1.3 kg

DRUGS (7)
  1. NORVIR [Suspect]
  2. LAMIVUDINE [Suspect]
  3. STAVUDINE [Suspect]
  4. ZIDOVUDINE [Suspect]
     Indication: HIV INFECTION
     Dosage: ORAL
     Route: 048
  5. ZIDOVUDINE [Suspect]
     Indication: PROPHYLAXIS
     Dosage: ORAL
     Route: 048
  6. LAMIVUDINE [Suspect]
     Indication: HIV INFECTION
     Dosage: ORAL
     Route: 048
  7. LAMIVUDINE [Suspect]
     Indication: PROPHYLAXIS
     Dosage: ORAL
     Route: 048

REACTIONS (16)
  - AMYOTROPHY [None]
  - ANAEMIA [None]
  - BLOOD CREATINE PHOSPHOKINASE INCREASED [None]
  - DEVELOPMENTAL DELAY [None]
  - DYSPRAXIA [None]
  - ENCOPRESIS [None]
  - ENURESIS [None]
  - FOETAL DISORDER [None]
  - HEPATIC ENZYME INCREASED [None]
  - LOWER LIMB DEFORMITY [None]
  - MATERNAL DRUGS AFFECTING FOETUS [None]
  - MUSCLE ATROPHY [None]
  - NEONATAL RESPIRATORY DISTRESS SYNDROME [None]
  - OVERDOSE [None]
  - PREMATURE BABY [None]
  - THROMBOCYTOPENIA [None]
